FAERS Safety Report 9721574 (Version 1)
Quarter: 2013Q4

REPORT INFORMATION
  Report Type: Spontaneous
  Country: AU (occurrence: AU)
  Receive Date: 20131201
  Receipt Date: 20131201
  Transmission Date: 20140711
  Serious: Yes (Death, Other)
  Sender: FDA-Public Use
  Company Number: AU-009507513-1311AUS012083

PATIENT
  Age: 58 Year
  Sex: Female

DRUGS (2)
  1. SIMVASTATIN [Suspect]
     Dosage: 80 MILLIGRAM
  2. GEMFIBROZIL [Interacting]
     Dosage: 600 MILLIGRAM

REACTIONS (3)
  - Rhabdomyolysis [Fatal]
  - Renal failure acute [Fatal]
  - Drug interaction [Fatal]
